FAERS Safety Report 8829484 (Version 2)
Quarter: 2013Q2

REPORT INFORMATION
  Report Type: Spontaneous
  Country: US (occurrence: US)
  Receive Date: 20121008
  Receipt Date: 20130403
  Transmission Date: 20140414
  Serious: No
  Sender: FDA-Public Use
  Company Number: US-BAYER-2012-104581

PATIENT
  Age: 20 Year
  Sex: Female

DRUGS (1)
  1. BEYAZ [Suspect]
     Indication: CONTRACEPTION

REACTIONS (3)
  - Drug dose omission [Recovered/Resolved]
  - Drug dose omission [None]
  - Drug dose omission [None]
